FAERS Safety Report 20942962 (Version 1)
Quarter: 2022Q2

REPORT INFORMATION
  Report Type: Spontaneous
  Country: RO (occurrence: RO)
  Receive Date: 20220610
  Receipt Date: 20220610
  Transmission Date: 20220720
  Serious: Yes (Death, Other)
  Sender: FDA-Public Use
  Company Number: RO-Zentiva-2022-ZT-004457

PATIENT
  Age: 64 Year
  Sex: Male

DRUGS (4)
  1. DEXAMETHASONE [Suspect]
     Active Substance: DEXAMETHASONE
     Indication: Plasma cell myeloma
     Dosage: CYCLE OF THERAPY AS 21 DAYS WITH BORTEZOMIB AND CYCLOPHOSPHAMIDE, 3 CYCLES OF THERAPY WITH IXAZOMIB
     Route: 065
  2. DEXAMETHASONE [Suspect]
     Active Substance: DEXAMETHASONE
     Dosage: 3 CYCLES OF THERAPY WITH IXAZOMIB AND LENALIDOMIDE
     Route: 065
  3. LENALIDOMIDE [Suspect]
     Active Substance: LENALIDOMIDE
     Indication: Plasma cell myeloma
     Dosage: 3 CYCLES OF THERAPY WITH IXAZOMIB AND DEXAMETHASONE
     Route: 065
  4. IXAZOMIB [Suspect]
     Active Substance: IXAZOMIB
     Indication: Plasma cell myeloma
     Dosage: 3 CYCLES OF THERAPY WITH LENALIDOMIDE AND DEXAMETHASONE
     Route: 065

REACTIONS (10)
  - Haemophagocytic lymphohistiocytosis [Fatal]
  - Fatigue [Not Recovered/Not Resolved]
  - Hypofibrinogenaemia [Not Recovered/Not Resolved]
  - Jaundice [Not Recovered/Not Resolved]
  - Hyperferritinaemia [Not Recovered/Not Resolved]
  - Acute hepatic failure [Fatal]
  - Thrombocytopenia [Not Recovered/Not Resolved]
  - Erythema [Not Recovered/Not Resolved]
  - Coagulopathy [Not Recovered/Not Resolved]
  - Product use issue [Unknown]
